FAERS Safety Report 20667109 (Version 1)
Quarter: 2022Q2

REPORT INFORMATION
  Report Type: Spontaneous
  Country: US (occurrence: US)
  Receive Date: 20220404
  Receipt Date: 20220404
  Transmission Date: 20220721
  Serious: No
  Sender: FDA-Public Use
  Company Number: US-BRISTOL-MYERS SQUIBB COMPANY-2022-013339

PATIENT
  Age: 75 Year
  Sex: Female
  Weight: 69.853 kg

DRUGS (1)
  1. REVLIMID [Suspect]
     Active Substance: LENALIDOMIDE
     Indication: Plasma cell myeloma
     Dosage: 10 MG CAPSULE, ORAL, QD FOR 21 DAYS
     Route: 048

REACTIONS (2)
  - Muscle spasms [Recovering/Resolving]
  - Muscle spasms [Recovering/Resolving]
